FAERS Safety Report 13115830 (Version 1)
Quarter: 2017Q1

REPORT INFORMATION
  Report Type: Spontaneous
  Country: US (occurrence: US)
  Receive Date: 20170115
  Receipt Date: 20170115
  Transmission Date: 20170428
  Serious: No
  Sender: FDA-Public Use
  Company Number: US-TORRENT-00001313

PATIENT
  Sex: Female

DRUGS (12)
  1. RISPERIDONE TABLET [Suspect]
     Active Substance: RISPERIDONE
     Dosage: 1MG PER DAY
     Dates: start: 2004, end: 2009
  2. BABY ASPIRIN [Concomitant]
     Active Substance: ASPIRIN
     Dosage: ONCE A DAY
  3. VITAMIN B12 [Concomitant]
     Active Substance: CYANOCOBALAMIN
  4. MELATONIN [Concomitant]
     Active Substance: MELATONIN
     Indication: INSOMNIA
     Dosage: 5 MG AT BEDTIME AND ANOTHER 5 MG IF AWAKENS EARLY
  5. ELIQUIS [Concomitant]
     Active Substance: APIXABAN
     Dosage: TWICE A DAY
  6. VITAMIN D3 [Concomitant]
     Active Substance: CHOLECALCIFEROL
  7. LIPITOR [Concomitant]
     Active Substance: ATORVASTATIN CALCIUM
     Dosage: 1 DAILY
  8. METOPROLOL. [Concomitant]
     Active Substance: METOPROLOL
     Dosage: 1 DAILY
  9. BACLOFEN. [Concomitant]
     Active Substance: BACLOFEN
     Indication: MUSCLE SPASMS
     Dosage: 1 DAILY
  10. ALLOPURINOL. [Concomitant]
     Active Substance: ALLOPURINOL
     Dosage: 1 DAILY
  11. RISPERIDONE TABLET [Suspect]
     Active Substance: RISPERIDONE
     Indication: PRODUCT USED FOR UNKNOWN INDICATION
     Dosage: 2 MG PER DAY
     Dates: start: 2009
  12. SYNTHROID [Concomitant]
     Active Substance: LEVOTHYROXINE SODIUM
     Dosage: 1 DAILY

REACTIONS (32)
  - Disturbance in attention [Unknown]
  - Blood cholesterol increased [Unknown]
  - Vision blurred [Unknown]
  - Dysphagia [Unknown]
  - Gait disturbance [Unknown]
  - Pain in extremity [Unknown]
  - Constipation [Unknown]
  - Dandruff [Unknown]
  - Muscle spasms [Unknown]
  - Dizziness [Unknown]
  - Coordination abnormal [Unknown]
  - Abnormal dreams [Unknown]
  - Amenorrhoea [Unknown]
  - Pain [Unknown]
  - Libido decreased [Unknown]
  - Pollakiuria [Unknown]
  - Memory impairment [Unknown]
  - Pruritus [Unknown]
  - Insomnia [Unknown]
  - Heart rate increased [Unknown]
  - Dysarthria [Unknown]
  - Balance disorder [Unknown]
  - Weight increased [Unknown]
  - Sneezing [Unknown]
  - Breast pain [Unknown]
  - Dry skin [Unknown]
  - Toothache [Unknown]
  - Anxiety [Unknown]
  - Thirst [Unknown]
  - Dry mouth [Unknown]
  - Headache [Unknown]
  - Breast swelling [Unknown]
